FAERS Safety Report 21897877 (Version 1)
Quarter: 2023Q1

REPORT INFORMATION
  Report Type: Spontaneous
  Country: CZ (occurrence: CZ)
  Receive Date: 20230123
  Receipt Date: 20230123
  Transmission Date: 20230418
  Serious: Yes (Hospitalization)
  Sender: FDA-Public Use
  Company Number: None

PATIENT
  Age: 55 Year
  Sex: Female

DRUGS (7)
  1. CLONAZEPAM [Suspect]
     Active Substance: CLONAZEPAM
     Indication: Suicide attempt
     Dosage: DOSE UNKNOWN
     Dates: start: 20200914, end: 20200914
  2. NOVALGIN (METAMIZOLE SODIUM) [Suspect]
     Active Substance: METAMIZOLE SODIUM
     Indication: Suicide attempt
     Dosage: DOSE UNKNOWN
     Dates: start: 20200914, end: 20200914
  3. IBUPROFEN [Suspect]
     Active Substance: IBUPROFEN
     Indication: Suicide attempt
     Dosage: DOSE UNKNOWN
     Dates: start: 20200914, end: 20200914
  4. FENPIVERINIUM BROMIDE\METAMIZOLE SODIUM\PITOFENONE HYDROCHLORIDE [Suspect]
     Active Substance: FENPIVERINIUM BROMIDE\METAMIZOLE SODIUM\PITOFENONE HYDROCHLORIDE
     Indication: Suicide attempt
     Dosage: DOSE UNKNOWN
     Dates: start: 20200914, end: 20200914
  5. TRAZODONE HYDROCHLORIDE [Suspect]
     Active Substance: TRAZODONE HYDROCHLORIDE
     Indication: Suicide attempt
     Dosage: DOSE UNKNOWN
     Dates: start: 20200914, end: 20200914
  6. PANADOL [Suspect]
     Active Substance: ACETAMINOPHEN
     Indication: Suicide attempt
     Dosage: TOTAL DOSE OF PARACETAMOL 4500 MG??TOTALDOSE OF CAFFEINE 585 MG
     Route: 048
     Dates: start: 20200914, end: 20200914
  7. ALCOHOL [Suspect]
     Active Substance: ALCOHOL

REACTIONS (2)
  - Intentional overdose [Unknown]
  - Suicide attempt [Unknown]

NARRATIVE: CASE EVENT DATE: 20200914
